FAERS Safety Report 5623658-8 (Version None)
Quarter: 2008Q1

REPORT INFORMATION
  Report Type: 
  Country: None (occurrence: None)
  Receive Date: 20080129
  Receipt Date: 20070724
  Transmission Date: 20080703
  Serious: Yes (Other)
  Sender: FDA-Public Use
  Company Number: WAES 0707USA04294

PATIENT

DRUGS (1)
  1. INVANZ [Suspect]
     Dosage: 1 GM/DAILY/IM
     Route: 030

REACTIONS (1)
  - CONVULSION [None]
